FAERS Safety Report 5345308-0 (Version None)
Quarter: 2007Q2

REPORT INFORMATION
  Report Type: 
  Country: None (occurrence: None)
  Receive Date: 20070601
  Receipt Date: 20070517
  Transmission Date: 20071010
  Serious: Yes (Hospitalization)
  Sender: FDA-Public Use
  Company Number: T200700555

PATIENT
  Age: 74 Year
  Sex: Female
  Weight: 52.2 kg

DRUGS (5)
  1. METHADONE HCL [Suspect]
     Indication: PAIN IN EXTREMITY
     Dosage: 20 MG, TID, ORAL
     Route: 048
     Dates: start: 20070430, end: 20070501
  2. ZANTAC [Concomitant]
  3. ALPRAZOLAM [Concomitant]
  4. CYMBALTA [Concomitant]
  5. HYDROCODONE/ACETAMINOPHEN (HYDROCODONE BITARTRATE, ACETAMINOPHEN) [Concomitant]

REACTIONS (8)
  - APHASIA [None]
  - BLOOD PRESSURE INCREASED [None]
  - DIZZINESS [None]
  - FEELING ABNORMAL [None]
  - HYPOKINESIA [None]
  - NAUSEA [None]
  - SENSATION OF HEAVINESS [None]
  - VOMITING [None]
